FAERS Safety Report 10841241 (Version 1)
Quarter: 2015Q1

REPORT INFORMATION
  Report Type: Spontaneous
  Country: US (occurrence: US)
  Receive Date: 20150220
  Receipt Date: 20150220
  Transmission Date: 20150721
  Serious: No
  Sender: FDA-Public Use
  Company Number: US-ASTRAZENECA-2015SE13762

PATIENT
  Sex: Female

DRUGS (4)
  1. UNSPECIFIED GENERIC [Suspect]
     Active Substance: UNSPECIFIED INGREDIENT
     Route: 065
  2. NEXIUM [Suspect]
     Active Substance: ESOMEPRAZOLE MAGNESIUM
     Route: 048
  3. NEXIUM [Suspect]
     Active Substance: ESOMEPRAZOLE MAGNESIUM
     Indication: GASTROOESOPHAGEAL REFLUX DISEASE
     Route: 048
  4. GENERIC FOR HIGH BLOOD PRESSURE [Concomitant]
     Indication: HYPERTENSION
     Route: 065

REACTIONS (4)
  - Oesophageal disorder [Unknown]
  - Dysphagia [Unknown]
  - Nightmare [Recovered/Resolved]
  - Dry mouth [Unknown]
